FAERS Safety Report 18030976 (Version 2)
Quarter: 2020Q3

REPORT INFORMATION
  Report Type: Spontaneous
  Country: JP (occurrence: JP)
  Receive Date: 20200715
  Receipt Date: 20200721
  Transmission Date: 20201103
  Serious: Yes (Hospitalization, Other)
  Sender: FDA-Public Use
  Company Number: JP-ROCHE-2642460

PATIENT
  Age: 79 Year
  Sex: Male
  Weight: 68 kg

DRUGS (16)
  1. CARBOPLATIN. [Suspect]
     Active Substance: CARBOPLATIN
     Indication: SMALL CELL LUNG CANCER
     Route: 041
     Dates: start: 20200707, end: 20200707
  2. ETOPOSIDE. [Suspect]
     Active Substance: ETOPOSIDE
     Indication: SMALL CELL LUNG CANCER
     Route: 041
     Dates: start: 20200707, end: 20200707
  3. BROTIZOLAM [Concomitant]
     Active Substance: BROTIZOLAM
     Route: 065
  4. CILOSTAZOL. [Concomitant]
     Active Substance: CILOSTAZOL
     Route: 065
  5. URIEF [Concomitant]
     Active Substance: SILODOSIN
  6. DIART [Concomitant]
     Active Substance: AZOSEMIDE
     Route: 065
  7. NEXIUM [Concomitant]
     Active Substance: ESOMEPRAZOLE MAGNESIUM
     Route: 065
  8. AMLODIPINE [Concomitant]
     Active Substance: AMLODIPINE BESYLATE
     Route: 065
  9. EPALRESTAT [Concomitant]
     Active Substance: EPALRESTAT
     Route: 065
  10. BILANOA [Concomitant]
     Active Substance: BILASTINE
     Route: 065
  11. BERAPROST SODIUM [Concomitant]
     Active Substance: BERAPROST SODIUM
     Route: 065
  12. L?CARBOCISTEINE [Concomitant]
     Active Substance: CARBOCYSTEINE
     Route: 065
  13. LYRICA [Concomitant]
     Active Substance: PREGABALIN
     Route: 065
  14. TECENTRIQ [Suspect]
     Active Substance: ATEZOLIZUMAB
     Indication: SMALL CELL LUNG CANCER
     Dosage: DOSAGE IS UNCERTAIN.
     Route: 041
     Dates: start: 20200707
  15. BAYASPIRIN [Concomitant]
     Active Substance: ASPIRIN
     Route: 065
  16. CLOPIDOGREL [Concomitant]
     Active Substance: CLOPIDOGREL BISULFATE

REACTIONS (2)
  - Platelet count decreased [Recovered/Resolved]
  - Tumour lysis syndrome [Recovered/Resolved]

NARRATIVE: CASE EVENT DATE: 20200708
